FAERS Safety Report 8376481-8 (Version None)
Quarter: 2012Q2

REPORT INFORMATION
  Report Type: 
  Country: None (occurrence: None)
  Receive Date: 20120522
  Receipt Date: 20120515
  Transmission Date: 20120825
  Serious: Yes (Other)
  Sender: FDA-Public Use
  Company Number: US-PFIZER INC-2012118323

PATIENT
  Sex: Female

DRUGS (2)
  1. PROTONIX [Suspect]
     Dosage: UNK, TWICE A DAY
  2. PROTONIX [Suspect]
     Indication: ABDOMINAL DISCOMFORT
     Dosage: UNK, AS NEEDED

REACTIONS (4)
  - PARAESTHESIA ORAL [None]
  - ASTHMA [None]
  - RASH [None]
  - PERIOSTITIS [None]
